FAERS Safety Report 6424714-7 (Version None)
Quarter: 2009Q4

REPORT INFORMATION
  Report Type: 
  Country: None (occurrence: None)
  Receive Date: 20091030
  Receipt Date: 20091030
  Transmission Date: 20100525
  Serious: Yes (Hospitalization)
  Sender: FDA-Public Use
  Company Number: None

PATIENT
  Age: 61 Year

DRUGS (2)
  1. GEMFIBROZIL [Suspect]
     Indication: HYPERLIPIDAEMIA
     Dosage: 600 MG BID PO
     Route: 048
     Dates: start: 20070308, end: 20080929
  2. SIMVASTATIN [Suspect]
     Dosage: 10 MG EVERY DAY PO
     Route: 048
     Dates: start: 20070308, end: 20080929

REACTIONS (4)
  - BLOOD CREATINE PHOSPHOKINASE INCREASED [None]
  - BLOOD TRIGLYCERIDES INCREASED [None]
  - MYALGIA [None]
  - RENAL FAILURE ACUTE [None]
